FAERS Safety Report 7242251-7 (Version None)
Quarter: 2011Q1

REPORT INFORMATION
  Report Type: 
  Country: None (occurrence: None)
  Receive Date: 20110124
  Receipt Date: 20110120
  Transmission Date: 20110831
  Serious: Yes (Other)
  Sender: FDA-Public Use
  Company Number: IT-SANOFI-AVENTIS-2011SA003727

PATIENT
  Age: 61 Year
  Sex: Male

DRUGS (2)
  1. PLAVIX [Suspect]
     Indication: STENT PLACEMENT
     Route: 048
     Dates: start: 20050101, end: 20100901
  2. ASPIRIN [Concomitant]
     Route: 048
     Dates: start: 20050101, end: 20100914

REACTIONS (3)
  - DEVICE OCCLUSION [None]
  - ANGINA PECTORIS [None]
  - DRUG INEFFECTIVE [None]
